FAERS Safety Report 19877679 (Version 1)
Quarter: 2021Q3

REPORT INFORMATION
  Report Type: Spontaneous
  Country: AU (occurrence: AU)
  Receive Date: 20210923
  Receipt Date: 20210923
  Transmission Date: 20211014
  Serious: Yes (Other)
  Sender: FDA-Public Use
  Company Number: NVSC2021AU214729

PATIENT
  Age: 60 Year
  Sex: Male

DRUGS (2)
  1. PREDNISONE. [Suspect]
     Active Substance: PREDNISONE
     Indication: CHRONIC GRAFT VERSUS HOST DISEASE
     Dosage: UNK, UNKNOWN
     Route: 065
  2. MYCOPHENOLATE MOFETIL. [Suspect]
     Active Substance: MYCOPHENOLATE MOFETIL
     Indication: CHRONIC GRAFT VERSUS HOST DISEASE
     Dosage: UNK, UNKNOWN
     Route: 065

REACTIONS (7)
  - Skin ulcer [Unknown]
  - Toxicity to various agents [Unknown]
  - Steroid dependence [Unknown]
  - Septic shock [Unknown]
  - Neuropsychiatric symptoms [Unknown]
  - Therapy partial responder [Unknown]
  - Diabetes mellitus [Unknown]
